FAERS Safety Report 4758037-9 (Version None)
Quarter: 2005Q3

REPORT INFORMATION
  Report Type: 
  Country: None (occurrence: None)
  Receive Date: 20050830
  Receipt Date: 20050815
  Transmission Date: 20060218
  Serious: Yes (Other)
  Sender: FDA-Public Use
  Company Number: 702205

PATIENT

DRUGS (1)
  1. AMEVIVE [Suspect]

REACTIONS (1)
  - PULMONARY EMBOLISM [None]
